FAERS Safety Report 13016312 (Version 1)
Quarter: 2016Q4

REPORT INFORMATION
  Report Type: Spontaneous
  Country: US (occurrence: US)
  Receive Date: 20161212
  Receipt Date: 20161212
  Transmission Date: 20170207
  Serious: Yes (Hospitalization)
  Sender: FDA-Public Use
  Company Number: US-AUROBINDO-AUR-APL-2016-15037

PATIENT
  Age: 73 Year
  Sex: Male

DRUGS (1)
  1. PREDNISONE. [Suspect]
     Active Substance: PREDNISONE
     Indication: PULMONARY SARCOIDOSIS
     Dosage: 40 MG, UNK
     Route: 048

REACTIONS (9)
  - Encephalopathy [Recovered/Resolved]
  - Ischaemic stroke [Recovered/Resolved]
  - Mental status changes [Recovered/Resolved]
  - Asthenia [Not Recovered/Not Resolved]
  - Meningitis cryptococcal [Not Recovered/Not Resolved]
  - Diffuse vasculitis [Recovered/Resolved]
  - Seizure [Recovered/Resolved]
  - Delirium [Recovered/Resolved]
  - Pyrexia [Recovered/Resolved]
